FAERS Safety Report 9536719 (Version 1)
Quarter: 2013Q3

REPORT INFORMATION
  Report Type: Spontaneous
  Country: US (occurrence: US)
  Receive Date: 20130919
  Receipt Date: 20130919
  Transmission Date: 20140515
  Serious: Yes (Hospitalization)
  Sender: FDA-Public Use
  Company Number: US-SANOFI-AVENTIS-2013SA090500

PATIENT
  Sex: 0

DRUGS (1)
  1. ARAVA [Suspect]
     Route: 065

REACTIONS (1)
  - Adverse event [Unknown]
